FAERS Safety Report 9125017 (Version 1)
Quarter: 2013Q1

REPORT INFORMATION
  Report Type: Spontaneous
  Country: US (occurrence: US)
  Receive Date: 20130117
  Receipt Date: 20130117
  Transmission Date: 20140127
  Serious: Yes (Other)
  Sender: FDA-Public Use
  Company Number: US-PFIZER INC-2013018732

PATIENT
  Sex: 0

DRUGS (3)
  1. ALPRAZOLAM [Suspect]
     Dosage: UNK
  2. ALPRAZOLAM [Suspect]
     Dosage: 2 MG, UNK
  3. ALPRAZOLAM [Suspect]
     Dosage: UNK

REACTIONS (3)
  - Urticaria [Recovering/Resolving]
  - Drug ineffective [Unknown]
  - Incorrect dose administered [Unknown]
